FAERS Safety Report 10146797 (Version 1)
Quarter: 2014Q2

REPORT INFORMATION
  Report Type: Spontaneous
  Country: US (occurrence: None)
  Receive Date: 20140430
  Receipt Date: 20140430
  Transmission Date: 20141212
  Serious: Yes (Hospitalization)
  Sender: FDA-Public Use
  Company Number: None

PATIENT
  Age: 60 Year
  Sex: Male

DRUGS (19)
  1. TACROLIMUS [Suspect]
     Indication: PRODUCT USED FOR UNKNOWN INDICATION
     Dosage: 1.5 MG, EVERY 12 HOURS, PO?
     Route: 048
     Dates: start: 20140206, end: 20140206
  2. ACETAMINOPHEN [Concomitant]
  3. ASCORBIC ACID [Concomitant]
  4. CALCIUM CARBONATE/VITAMIN D [Concomitant]
  5. CEFEPIME [Concomitant]
  6. CYANOTOBALAMIN [Concomitant]
  7. DOCUSATE [Concomitant]
  8. FERROUS SULFATE [Concomitant]
  9. LABETALOL [Concomitant]
  10. LANSOPRAZOLE [Concomitant]
  11. MULTIVITAMIN [Concomitant]
  12. OSELTAMIVIR [Concomitant]
  13. POTASSIUM PHOSPHATE [Concomitant]
  14. PREDNISONE [Concomitant]
  15. QUETIAPINE [Concomitant]
  16. SENNA [Concomitant]
  17. TACROLIMUS [Concomitant]
  18. VALGANCICLOVIR [Concomitant]
  19. VORICONAROLE [Concomitant]

REACTIONS (5)
  - Septic shock [None]
  - Renal failure acute [None]
  - Drug level above therapeutic [None]
  - Blood potassium increased [None]
  - Electrocardiogram abnormal [None]
